FAERS Safety Report 4427439-2 (Version None)
Quarter: 2004Q3

REPORT INFORMATION
  Report Type: 
  Country: None (occurrence: None)
  Receive Date: 20040813
  Receipt Date: 20040809
  Transmission Date: 20050211
  Serious: Yes (Other)
  Sender: FDA-Public Use
  Company Number: 8608

PATIENT
  Age: 61 Year
  Sex: Female

DRUGS (1)
  1. PACLITAXEL [Suspect]
     Indication: UTERINE CANCER
     Dosage: 350 MG ONCE IV
     Route: 042
     Dates: start: 20040806, end: 20040806

REACTIONS (4)
  - ARTHRALGIA [None]
  - BACK PAIN [None]
  - DYSPNOEA [None]
  - FLUSHING [None]
